FAERS Safety Report 7442386-X (Version None)
Quarter: 2011Q2

REPORT INFORMATION
  Report Type: 
  Country: None (occurrence: None)
  Receive Date: 20110428
  Receipt Date: 20110419
  Transmission Date: 20111010
  Serious: Yes (Hospitalization, Other)
  Sender: FDA-Public Use
  Company Number: US-ROCHE-755701

PATIENT
  Sex: Female
  Weight: 61.4 kg

DRUGS (6)
  1. COUMADIN [Concomitant]
     Dates: start: 20070101, end: 20100617
  2. ATIVAN [Concomitant]
  3. IRINOTECAN [Suspect]
     Route: 042
     Dates: start: 20100606, end: 20110316
  4. BEVACIZUMAB [Suspect]
     Indication: OVARIAN CANCER
     Route: 042
     Dates: start: 20100526, end: 20110316
  5. IRINOTECAN [Suspect]
     Indication: OVARIAN CANCER
     Route: 042
     Dates: start: 20100526
  6. KEPPRA [Concomitant]

REACTIONS (8)
  - NEUTROPENIC INFECTION [None]
  - INTERNATIONAL NORMALISED RATIO INCREASED [None]
  - CONVULSION [None]
  - TUMOUR RUPTURE [None]
  - SPEECH DISORDER [None]
  - FALL [None]
  - HYPERTENSION [None]
  - MUSCULOSKELETAL STIFFNESS [None]
